FAERS Safety Report 19839277 (Version 1)
Quarter: 2021Q3

REPORT INFORMATION
  Report Type: Spontaneous
  Country: US (occurrence: US)
  Receive Date: 20210915
  Receipt Date: 20210915
  Transmission Date: 20211014
  Serious: Yes (Disabling)
  Sender: FDA-Public Use
  Company Number: None

PATIENT
  Age: 36 Year
  Sex: Female
  Weight: 62.1 kg

DRUGS (3)
  1. DICLEGIS [Suspect]
     Active Substance: DOXYLAMINE SUCCINATE\PYRIDOXINE HYDROCHLORIDE
     Indication: MORNING SICKNESS
     Dates: start: 20210115, end: 20210811
  2. PRENTALA VITAMIN [Concomitant]
  3. BONJESTA [Suspect]
     Active Substance: DOXYLAMINE SUCCINATE\PYRIDOXINE HYDROCHLORIDE

REACTIONS (4)
  - Maternal exposure during pregnancy [None]
  - Nausea [None]
  - Maternal drugs affecting foetus [None]
  - Milk allergy [None]

NARRATIVE: CASE EVENT DATE: 20210914
